FAERS Safety Report 8789183 (Version 1)
Quarter: 2012Q4

REPORT INFORMATION
  Report Type: 
  Country: US (occurrence: None)
  Receive Date: 20120907
  Receipt Date: 20120907
  Transmission Date: 20130627
  Serious: Yes (Hospitalization)
  Sender: FDA-Public Use
  Company Number: None

PATIENT
  Sex: Female
  Weight: 75.27 kg

DRUGS (1)
  1. BEVACIZUMAB [Suspect]
     Dates: end: 20120605

REACTIONS (1)
  - Proteinuria [None]
